FAERS Safety Report 12771854 (Version 1)
Quarter: 2016Q3

REPORT INFORMATION
  Report Type: Spontaneous
  Country: US (occurrence: US)
  Receive Date: 20160922
  Receipt Date: 20160922
  Transmission Date: 20161109
  Serious: No
  Sender: FDA-Public Use
  Company Number: US-ELI_LILLY_AND_COMPANY-US201609005455

PATIENT
  Age: 60 Year
  Sex: Female

DRUGS (1)
  1. STRATTERA [Suspect]
     Active Substance: ATOMOXETINE HYDROCHLORIDE
     Indication: DAYDREAMING
     Dosage: 80 MG, UNKNOWN

REACTIONS (2)
  - Palpitations [Recovered/Resolved]
  - Off label use [Unknown]
